FAERS Safety Report 15150863 (Version 1)
Quarter: 2018Q3

REPORT INFORMATION
  Report Type: Spontaneous
  Country: US (occurrence: US)
  Receive Date: 20180716
  Receipt Date: 20180716
  Transmission Date: 20181010
  Serious: No
  Sender: FDA-Public Use
  Company Number: US-SA-2018SA137222

PATIENT
  Age: 76 Year
  Sex: Female

DRUGS (3)
  1. NASACORT ALLERGY 24HR [Suspect]
     Active Substance: TRIAMCINOLONE ACETONIDE
     Indication: NASOPHARYNGITIS
     Dosage: 55 UG,QD
     Route: 045
     Dates: start: 20180312, end: 20180511
  2. XARELTO [Concomitant]
     Active Substance: RIVAROXABAN
  3. NASACORT ALLERGY 24HR [Suspect]
     Active Substance: TRIAMCINOLONE ACETONIDE
     Indication: RESPIRATORY DISORDER

REACTIONS (3)
  - Drug ineffective [Unknown]
  - Epistaxis [Unknown]
  - Insomnia [Unknown]
